FAERS Safety Report 9146025 (Version 1)
Quarter: 2013Q1

REPORT INFORMATION
  Report Type: Spontaneous
  Country: US (occurrence: US)
  Receive Date: 20130307
  Receipt Date: 20130307
  Transmission Date: 20140127
  Serious: Yes (Hospitalization, Other)
  Sender: FDA-Public Use
  Company Number: US-ELI_LILLY_AND_COMPANY-US201302009636

PATIENT
  Age: 27 Year
  Sex: Female

DRUGS (2)
  1. ATOMOXETINE HYDROCHLORIDE [Suspect]
     Indication: ATTENTION DEFICIT/HYPERACTIVITY DISORDER
     Dosage: 40 MG, QD
  2. ATOMOXETINE HYDROCHLORIDE [Suspect]
     Dosage: 120 MG, UNK

REACTIONS (8)
  - Pituitary haemorrhage [Unknown]
  - Cerebral haemorrhage [Unknown]
  - Grand mal convulsion [Recovered/Resolved]
  - Intentional drug misuse [Unknown]
  - Rathke^s cleft cyst [Unknown]
  - Diabetes insipidus [Recovered/Resolved]
  - Drug screen false positive [Unknown]
  - Overdose [Unknown]
